FAERS Safety Report 21395937 (Version 4)
Quarter: 2022Q4

REPORT INFORMATION
  Report Type: Report from Study
  Country: US (occurrence: None)
  Receive Date: 20220930
  Receipt Date: 20221102
  Transmission Date: 20230113
  Serious: Yes (Hospitalization)
  Sender: FDA-Public Use
  Company Number: US-ROCHE-3189679

PATIENT
  Age: 78 Year
  Sex: Male
  Weight: 87.9 kg

DRUGS (9)
  1. PIRFENIDONE [Suspect]
     Active Substance: PIRFENIDONE
     Indication: Idiopathic pulmonary fibrosis
     Dosage: ON /AUG/2022, RECEIVED THE MOST RECENT DOSE (801 MG) PRIOR TO SAE
     Route: 048
     Dates: start: 202003
  2. TYLENOL [Concomitant]
     Active Substance: ACETAMINOPHEN
     Indication: Spondylolisthesis
     Route: 048
     Dates: start: 2019
  3. TYLENOL [Concomitant]
     Active Substance: ACETAMINOPHEN
     Indication: Sacroiliitis
  4. DOCUSATE [Concomitant]
     Active Substance: DOCUSATE
     Route: 048
     Dates: start: 202007
  5. LASIX [Concomitant]
     Active Substance: FUROSEMIDE
     Indication: Oedema
     Route: 048
     Dates: start: 2014
  6. FLONASE [Concomitant]
     Active Substance: FLUTICASONE PROPIONATE
     Indication: Seasonal allergy
     Dosage: 50 - OTHER
     Route: 045
     Dates: start: 20220505
  7. LISINOPRIL [Concomitant]
     Active Substance: LISINOPRIL
     Indication: Hypertension
     Route: 048
     Dates: start: 20220830, end: 20220916
  8. LISINOPRIL [Concomitant]
     Active Substance: LISINOPRIL
     Route: 048
     Dates: start: 20220920, end: 20221025
  9. ENALAPRIL [Concomitant]
     Active Substance: ENALAPRIL
     Indication: Hypertension
     Route: 042
     Dates: start: 20220917, end: 20220920

REACTIONS (1)
  - Small intestinal obstruction [Recovered/Resolved]

NARRATIVE: CASE EVENT DATE: 20220916
